FAERS Safety Report 10038415 (Version 1)
Quarter: 2014Q1

REPORT INFORMATION
  Report Type: Spontaneous
  Country: US (occurrence: None)
  Receive Date: 20140306
  Receipt Date: 20140306
  Transmission Date: 20141002
  Serious: Yes (Disabling)
  Sender: FDA-Public Use
  Company Number: 163-21880-13106356

PATIENT
  Age: 51 Year
  Sex: Female

DRUGS (6)
  1. REVLIMID [Suspect]
     Indication: PLASMA CELL MYELOMA
     Dosage: 10 MG, 1 IN 1 D, PO?
     Route: 048
     Dates: start: 201102
  2. ASPIRIN (ACETYLSALICYLIC ACID) (UNKNOWN) (ACETYLSALICYLIC ACID) [Concomitant]
  3. HYDROCODONE/APAP (VICODINE) (UNKNOWN) [Concomitant]
  4. LORAZEPAM (LORAZEPAM) (TABLETS) [Concomitant]
  5. MORPHINE (MORPHINE) (TABLETS) [Concomitant]
  6. SENOKOT (SENNA FRUIT) (UNKNOWN) [Concomitant]

REACTIONS (1)
  - Pain [None]
